FAERS Safety Report 9907795 (Version 1)
Quarter: 2014Q1

REPORT INFORMATION
  Report Type: Spontaneous
  Country: US (occurrence: US)
  Receive Date: 20140219
  Receipt Date: 20140219
  Transmission Date: 20141002
  Serious: No
  Sender: FDA-Public Use
  Company Number: US-BIOGENIDEC-2014BI013284

PATIENT
  Sex: Female

DRUGS (11)
  1. TECFIDERA [Suspect]
     Indication: PRODUCT USED FOR UNKNOWN INDICATION
     Route: 048
  2. CYMBALTA [Concomitant]
  3. CITALOPRAM [Concomitant]
  4. GABAPENTIN [Concomitant]
  5. OMEPRAZOLE [Concomitant]
  6. PROMETHAZINE [Concomitant]
  7. DICYCLOMINE [Concomitant]
  8. IBUPROFEN [Concomitant]
  9. LEVOTHYROXIN [Concomitant]
  10. AMITRIPTYLIN [Concomitant]
  11. CYCLOBENZAPR [Concomitant]

REACTIONS (1)
  - Drug ineffective [Unknown]
